FAERS Safety Report 9308144 (Version 1)
Quarter: 2013Q2

REPORT INFORMATION
  Report Type: Spontaneous
  Country: GB (occurrence: GB)
  Receive Date: 20130524
  Receipt Date: 20130524
  Transmission Date: 20140414
  Serious: Yes (Hospitalization, Disabling, Other)
  Sender: FDA-Public Use
  Company Number: GB-PFIZER INC-2013158150

PATIENT
  Age: 58 Year
  Sex: Male
  Weight: 77 kg

DRUGS (2)
  1. GABAPENTIN [Suspect]
     Indication: NEURALGIA
     Dosage: 900 MG, UNK
     Dates: start: 201102, end: 201305
  2. PREGABALIN [Suspect]
     Indication: DIABETIC NEUROPATHY
     Dosage: 900 MG, UNK
     Dates: start: 200802, end: 201002

REACTIONS (1)
  - Diabetic foot [Recovering/Resolving]
